FAERS Safety Report 18507550 (Version 3)
Quarter: 2020Q4

REPORT INFORMATION
  Report Type: Report from Study
  Country: BR (occurrence: BR)
  Receive Date: 20201116
  Receipt Date: 20201226
  Transmission Date: 20210114
  Serious: Yes (Other)
  Sender: FDA-Public Use
  Company Number: BR-AMGEN-BRACT2020176598

PATIENT
  Age: 41 Year
  Sex: Female

DRUGS (4)
  1. PASURTA [Suspect]
     Active Substance: ERENUMAB
     Indication: MIGRAINE
     Dosage: UNK UNK, Q4W (EVERY 28 DAYS)
     Route: 058
     Dates: start: 20200907, end: 20200907
  2. EUTHYROX [Concomitant]
     Active Substance: LEVOTHYROXINE SODIUM
     Indication: HYPOTHYROIDISM
     Dosage: 75 MICROGRAM, IN FASTING (MERCK)
     Route: 048
     Dates: start: 200406
  3. NEUTROFER [Concomitant]
     Active Substance: FERROUS BISGLYCINATE
     Indication: ANAEMIA
     Dosage: 300 MILLIGRAM, QD (IN THE NIGHT) (EMS)
     Route: 048
     Dates: start: 202006
  4. VITERSOL D [Concomitant]
     Active Substance: CHOLECALCIFEROL
     Indication: HYPERPARATHYROIDISM
     Dosage: 2000 UI, QD (IN THE NIGHT) (VITERSOL DK2)
     Route: 048
     Dates: start: 201911

REACTIONS (14)
  - Joint swelling [Unknown]
  - Drug hypersensitivity [Recovered/Resolved]
  - Maternal exposure during pregnancy [Not Recovered/Not Resolved]
  - Conjunctival oedema [Recovered/Resolved]
  - Pain [Recovered/Resolved]
  - Swelling face [Unknown]
  - Migraine [Recovered/Resolved]
  - Meibomianitis [Unknown]
  - Swelling of eyelid [Recovered/Resolved]
  - Eye swelling [Recovered/Resolved]
  - Laryngeal oedema [Unknown]
  - Migraine [Unknown]
  - Eyelid oedema [Recovered/Resolved]
  - Peripheral swelling [Unknown]

NARRATIVE: CASE EVENT DATE: 20200910
